FAERS Safety Report 13937890 (Version 1)
Quarter: 2017Q3

REPORT INFORMATION
  Report Type: Spontaneous
  Country: US (occurrence: US)
  Receive Date: 20170905
  Receipt Date: 20170905
  Transmission Date: 20171127
  Serious: Yes (Other)
  Sender: FDA-Public Use
  Company Number: US-ELI_LILLY_AND_COMPANY-US201708010358

PATIENT
  Sex: Male

DRUGS (2)
  1. ZYPREXA [Suspect]
     Active Substance: OLANZAPINE
     Dosage: 5 MG, EACH MORNING
     Route: 048
     Dates: start: 2016, end: 20170811
  2. ZYPREXA [Suspect]
     Active Substance: OLANZAPINE
     Indication: PRODUCT USED FOR UNKNOWN INDICATION
     Dosage: 20 MG, EACH EVENING
     Route: 048
     Dates: start: 2016, end: 20170811

REACTIONS (7)
  - Weight increased [Unknown]
  - Overdose [Recovered/Resolved]
  - Insomnia [Unknown]
  - Hallucination [Unknown]
  - Anxiety [Unknown]
  - Irritability [Unknown]
  - Restlessness [Unknown]

NARRATIVE: CASE EVENT DATE: 2016
